FAERS Safety Report 17508435 (Version 2)
Quarter: 2020Q1

REPORT INFORMATION
  Report Type: Spontaneous
  Country: US (occurrence: US)
  Receive Date: 20200306
  Receipt Date: 20200326
  Transmission Date: 20200409
  Serious: No
  Sender: FDA-Public Use
  Company Number: US-DSJP-DSU-2020-106117

PATIENT

DRUGS (2)
  1. TURALIO [Suspect]
     Active Substance: PEXIDARTINIB HYDROCHLORIDE
     Indication: NEOPLASM
     Dosage: 400 MG, BID,200MG QAM,400 MG QPM
     Route: 048
     Dates: start: 20200209
  2. TURALIO [Suspect]
     Active Substance: PEXIDARTINIB HYDROCHLORIDE
     Dosage: 3 DF, BID, 1 TAB QAM, 2 TABS QPM
     Route: 048
     Dates: start: 20200224, end: 20200229

REACTIONS (9)
  - Abdominal distension [Unknown]
  - Ageusia [Unknown]
  - Fatigue [Unknown]
  - Pain [Unknown]
  - Product dose omission [Unknown]
  - Dysgeusia [Unknown]
  - Cardiac flutter [Unknown]
  - Dry mouth [Unknown]
  - Feeling abnormal [Unknown]

NARRATIVE: CASE EVENT DATE: 202002
